FAERS Safety Report 16573352 (Version 1)
Quarter: 2019Q3

REPORT INFORMATION
  Report Type: Spontaneous
  Country: US (occurrence: US)
  Receive Date: 20190531
  Receipt Date: 20190531
  Transmission Date: 20191004
  Serious: Yes (Hospitalization)
  Sender: FDA-Public Use
  Company Number: None

PATIENT
  Age: 66 Year
  Sex: Male
  Weight: 118 kg

DRUGS (1)
  1. LISINOPRIL. [Suspect]
     Active Substance: LISINOPRIL
     Indication: HYPERTENSION
     Route: 048
     Dates: start: 20011114, end: 20180921

REACTIONS (5)
  - Angioedema [None]
  - Pharyngeal swelling [None]
  - Enlarged uvula [None]
  - Snoring [None]
  - Injury [None]

NARRATIVE: CASE EVENT DATE: 20180921
